FAERS Safety Report 13193094 (Version 3)
Quarter: 2018Q2

REPORT INFORMATION
  Report Type: Spontaneous
  Country: US (occurrence: US)
  Receive Date: 20170207
  Receipt Date: 20180529
  Transmission Date: 20180711
  Serious: Yes (Other)
  Sender: FDA-Public Use
  Company Number: US-HORIZON-RAV-0036-2017

PATIENT
  Age: 9 Year
  Sex: Male

DRUGS (3)
  1. RAVICTI [Suspect]
     Active Substance: GLYCEROL PHENYLBUTYRATE
     Indication: ARGINASE DEFICIENCY
     Dosage: 2.5 ML THREE TIMES DAILY
     Dates: start: 20150107
  2. CARNITINE [Concomitant]
     Active Substance: CARNITINE
  3. CYCLINEX [Concomitant]

REACTIONS (2)
  - Growth retardation [Unknown]
  - Laboratory test abnormal [Unknown]
